FAERS Safety Report 25230476 (Version 1)
Quarter: 2025Q2

REPORT INFORMATION
  Report Type: Report from Study
  Country: CA (occurrence: CA)
  Receive Date: 20250423
  Receipt Date: 20250423
  Transmission Date: 20250716
  Serious: Yes (Other)
  Sender: TAKEDA
  Company Number: CA-TAKEDA-2025TUS038505

PATIENT
  Sex: Male

DRUGS (11)
  1. VEDOLIZUMAB [Suspect]
     Active Substance: VEDOLIZUMAB
     Indication: Colitis ulcerative
     Dates: start: 20230810, end: 20250226
  2. CHOLECALCIFEROL [Concomitant]
     Active Substance: CHOLECALCIFEROL
  3. CALCIUM [Concomitant]
     Active Substance: CALCIUM
  4. LEVOFLOXACIN [Concomitant]
     Active Substance: LEVOFLOXACIN
  5. PREDNISONE [Concomitant]
     Active Substance: PREDNISONE
  6. PRAVASTATIN [Concomitant]
     Active Substance: PRAVASTATIN
  7. METFORMIN [Concomitant]
     Active Substance: METFORMIN HYDROCHLORIDE
  8. CANDESARTAN [Concomitant]
     Active Substance: CANDESARTAN
  9. SYNTHROID [Concomitant]
     Active Substance: LEVOTHYROXINE SODIUM
  10. Salofalk [Concomitant]
  11. MESALAMINE [Concomitant]
     Active Substance: MESALAMINE

REACTIONS (3)
  - Crohn^s disease [Not Recovered/Not Resolved]
  - Ankylosing spondylitis [Not Recovered/Not Resolved]
  - Therapeutic response decreased [Not Recovered/Not Resolved]
